FAERS Safety Report 21034904 (Version 4)
Quarter: 2022Q4

REPORT INFORMATION
  Report Type: Report from Study
  Country: UA (occurrence: None)
  Receive Date: 20220701
  Receipt Date: 20221121
  Transmission Date: 20230112
  Serious: Yes (Life-Threatening, Hospitalization)
  Sender: FDA-Public Use
  Company Number: 2022A156996

PATIENT
  Age: 13599 Day
  Sex: Female

DRUGS (10)
  1. OLAPARIB [Suspect]
     Active Substance: OLAPARIB
     Indication: Ovarian cancer
     Route: 048
     Dates: start: 20220208, end: 20220306
  2. OLAPARIB [Suspect]
     Active Substance: OLAPARIB
     Indication: Ovarian cancer
     Route: 048
     Dates: start: 20220307, end: 20220405
  3. CORAXAN [Concomitant]
     Indication: Tachycardia
     Route: 048
     Dates: start: 202107, end: 20220426
  4. REFORDEZ [Concomitant]
     Indication: Platelet count decreased
     Dosage: 400.0ML ONCE/SINGLE ADMINISTRATION
     Route: 042
     Dates: start: 20220405, end: 20220405
  5. DYCINON [Concomitant]
     Indication: Platelet count decreased
     Route: 048
     Dates: start: 20220406
  6. DEXAMETHASONE [Concomitant]
     Active Substance: DEXAMETHASONE
     Indication: Platelet count decreased
     Dosage: 120.0MG ONCE/SINGLE ADMINISTRATION
     Route: 042
     Dates: start: 20220405, end: 20220405
  7. TRANEXAMIC ACID [Concomitant]
     Active Substance: TRANEXAMIC ACID
     Indication: Platelet count decreased
     Dosage: 5.0ML ONCE/SINGLE ADMINISTRATION
     Route: 042
     Dates: start: 20220405, end: 20220405
  8. NEUPOGEN [Concomitant]
     Active Substance: FILGRASTIM
     Indication: Neutrophil count decreased
     Dosage: 48.0IU ONCE/SINGLE ADMINISTRATION
     Route: 058
     Dates: start: 20220405, end: 20220405
  9. NEUPOGEN [Concomitant]
     Active Substance: FILGRASTIM
     Indication: White blood cell count decreased
     Dosage: 48.0IU ONCE/SINGLE ADMINISTRATION
     Route: 058
     Dates: start: 20220405, end: 20220405
  10. LEVOFLOXACIN [Concomitant]
     Active Substance: LEVOFLOXACIN
     Indication: Infection prophylaxis
     Route: 048
     Dates: start: 20220405, end: 20220409

REACTIONS (1)
  - Anaemia [Recovered/Resolved]

NARRATIVE: CASE EVENT DATE: 20220405
